FAERS Safety Report 5650687-0 (Version None)
Quarter: 2008Q1

REPORT INFORMATION
  Report Type: 
  Country: None (occurrence: None)
  Receive Date: 20080305
  Receipt Date: 20080222
  Transmission Date: 20080703
  Serious: Yes (Other)
  Sender: FDA-Public Use
  Company Number: US-AMGEN-STX266745

PATIENT
  Sex: Female

DRUGS (2)
  1. ENBREL [Suspect]
     Indication: RHEUMATOID ARTHRITIS
     Route: 058
     Dates: start: 20060101, end: 20080201
  2. METHOTREXATE [Concomitant]
     Route: 065
     Dates: end: 20080201

REACTIONS (6)
  - COUGH [None]
  - DYSPNOEA [None]
  - EAR CONGESTION [None]
  - HEMIPARESIS [None]
  - NASAL CONGESTION [None]
  - RHEUMATOID ARTHRITIS [None]
